FAERS Safety Report 22209079 (Version 1)
Quarter: 2023Q2

REPORT INFORMATION
  Report Type: Other
  Country: US (occurrence: US)
  Receive Date: 20230413
  Receipt Date: 20230413
  Transmission Date: 20230722
  Serious: No
  Sender: FDA-Public Use
  Company Number: US-TRAVERE-2022TVT00592

PATIENT
  Age: 1 Year
  Sex: Female

DRUGS (3)
  1. CHOLIC ACID [Suspect]
     Active Substance: CHOLIC ACID
     Indication: Cerebrohepatorenal syndrome
     Dosage: 50 MG/ BID
     Route: 048
     Dates: start: 20220528
  2. MINERALS\VITAMINS [Concomitant]
     Active Substance: MINERALS\VITAMINS
  3. ERGOCALCIFEROL [Concomitant]
     Active Substance: ERGOCALCIFEROL

REACTIONS (4)
  - Influenza [Unknown]
  - Decreased appetite [Unknown]
  - Faeces soft [Unknown]
  - Bowel movement irregularity [Unknown]
